FAERS Safety Report 15841766 (Version 1)
Quarter: 2019Q1

REPORT INFORMATION
  Report Type: Spontaneous
  Country: IT (occurrence: IT)
  Receive Date: 20190118
  Receipt Date: 20190118
  Transmission Date: 20190417
  Serious: Yes (Hospitalization)
  Sender: FDA-Public Use
  Company Number: IT-009507513-1901ITA004929

PATIENT
  Age: 61 Year
  Sex: Male
  Weight: 63 kg

DRUGS (5)
  1. TIOTROPIUM BROMIDE [Concomitant]
     Active Substance: TIOTROPIUM BROMIDE
     Dosage: UNK
     Route: 055
  2. SIMVASTATIN. [Concomitant]
     Active Substance: SIMVASTATIN
     Dosage: UNK
     Route: 048
  3. ACETAMINOPHEN. [Concomitant]
     Active Substance: ACETAMINOPHEN
     Dosage: UNK
     Route: 048
  4. ENALAPRIL [Concomitant]
     Active Substance: ENALAPRIL
     Dosage: 5 MILLIGRAM
     Route: 048
  5. KEYTRUDA [Suspect]
     Active Substance: PEMBROLIZUMAB
     Indication: LUNG SQUAMOUS CELL CARCINOMA STAGE IV
     Dosage: 200 MILLIGRAM
     Route: 042
     Dates: start: 20181220, end: 20181220

REACTIONS (2)
  - Productive cough [Unknown]
  - Hyperpyrexia [Unknown]

NARRATIVE: CASE EVENT DATE: 20190101
